FAERS Safety Report 4342904-4 (Version None)
Quarter: 2004Q2

REPORT INFORMATION
  Report Type: 
  Country: None (occurrence: None)
  Receive Date: 20040416
  Receipt Date: 20040402
  Transmission Date: 20050107
  Serious: Yes (Hospitalization)
  Sender: FDA-Public Use
  Company Number: S04-USA-01896-01

PATIENT
  Sex: Female

DRUGS (1)
  1. NAMENDA [Suspect]

REACTIONS (1)
  - RENAL FAILURE ACUTE [None]
